FAERS Safety Report 9292455 (Version 1)
Quarter: 2013Q2

REPORT INFORMATION
  Report Type: Spontaneous
  Country: US (occurrence: None)
  Receive Date: 20130515
  Receipt Date: 20130515
  Transmission Date: 20140414
  Serious: No
  Sender: FDA-Public Use
  Company Number: None

PATIENT
  Age: 70 Year
  Sex: Female

DRUGS (2)
  1. AMOX-TR-K-CLV [Suspect]
     Dates: start: 20110602, end: 20110612
  2. PRAVASTATIN [Suspect]
     Dates: start: 20110629, end: 20110829

REACTIONS (4)
  - Cholelithiasis [None]
  - Aspartate aminotransferase increased [None]
  - Alanine aminotransferase increased [None]
  - Drug-induced liver injury [None]
